FAERS Safety Report 8073524-6 (Version None)
Quarter: 2012Q1

REPORT INFORMATION
  Report Type: 
  Country: None (occurrence: None)
  Receive Date: 20120126
  Receipt Date: 20111004
  Transmission Date: 20120608
  Serious: No
  Sender: FDA-Public Use
  Company Number: US-BAYER-2011-095557

PATIENT
  Age: 74 Year
  Sex: Female
  Weight: 68.027 kg

DRUGS (6)
  1. MULTI-VITAMIN [Concomitant]
  2. FISH OIL [Concomitant]
  3. ALEVE (CAPLET) [Suspect]
     Indication: ARTHRALGIA
     Dosage: 2 DF, QD
     Route: 048
  4. SYNTHROID [Concomitant]
  5. ASCORBIC ACID [Concomitant]
  6. CALCIUM [Concomitant]

REACTIONS (3)
  - INSOMNIA [None]
  - MIDDLE INSOMNIA [None]
  - ARTHRALGIA [None]
